FAERS Safety Report 6529215-3 (Version None)
Quarter: 2010Q1

REPORT INFORMATION
  Report Type: 
  Country: None (occurrence: None)
  Receive Date: 20100107
  Receipt Date: 20100104
  Transmission Date: 20100710
  Serious: No
  Sender: FDA-Public Use
  Company Number: BR-ROCHE-610064

PATIENT
  Age: 27 Year
  Sex: Female
  Weight: 68 kg

DRUGS (3)
  1. ROACUTAN [Suspect]
     Indication: DRUG USE FOR UNKNOWN INDICATION
     Route: 048
     Dates: start: 20080901, end: 20090112
  2. DIANE [Concomitant]
     Indication: CONTRACEPTION
     Dosage: MANUFACTURER: BAYER-SCHERING.
     Route: 048
     Dates: start: 20070101, end: 20081101
  3. SELENE [Concomitant]
     Indication: CONTRACEPTION
     Dosage: MANUFACTURER: EUROFARMA.
     Route: 048
     Dates: start: 20081205

REACTIONS (2)
  - NO ADVERSE EVENT [None]
  - PREGNANCY [None]
